FAERS Safety Report 9245531 (Version 1)
Quarter: 2013Q2

REPORT INFORMATION
  Report Type: Spontaneous
  Country: RU (occurrence: RU)
  Receive Date: 20130422
  Receipt Date: 20130422
  Transmission Date: 20140414
  Serious: Yes (Other)
  Sender: FDA-Public Use
  Company Number: RU-EISAI INC-E3810-06375-SPO-RU

PATIENT
  Sex: Male

DRUGS (2)
  1. PARIET (RABEPRAZOLE) [Suspect]
     Route: 048
     Dates: start: 20130401, end: 20130401
  2. OMEZ [Concomitant]
     Dates: start: 20130301, end: 20130401

REACTIONS (8)
  - Asphyxia [Recovered/Resolved]
  - Aphonia [Recovered/Resolved]
  - Scleritis [Recovered/Resolved]
  - Rash [Recovered/Resolved]
  - Urticaria [Recovered/Resolved]
  - Dizziness [Recovered/Resolved]
  - Diarrhoea [Recovered/Resolved]
  - Asthenia [Recovered/Resolved]
